FAERS Safety Report 23366673 (Version 2)
Quarter: 2024Q1

REPORT INFORMATION
  Report Type: Spontaneous
  Country: US (occurrence: US)
  Receive Date: 20240104
  Receipt Date: 20240115
  Transmission Date: 20240410
  Serious: Yes (Other)
  Sender: FDA-Public Use
  Company Number: US-BRISTOL-MYERS SQUIBB COMPANY-2023-188348

PATIENT
  Age: 93 Year
  Sex: Female

DRUGS (1)
  1. REVLIMID [Suspect]
     Active Substance: LENALIDOMIDE
     Indication: Plasma cell myeloma
     Dosage: QD
     Route: 048

REACTIONS (10)
  - Asthenia [Unknown]
  - Spinal fracture [Unknown]
  - Nausea [Unknown]
  - Insomnia [Unknown]
  - Diplopia [Unknown]
  - Dehydration [Unknown]
  - Diarrhoea [Unknown]
  - Constipation [Unknown]
  - Loss of consciousness [Unknown]
  - Head injury [Unknown]
